FAERS Safety Report 8850036 (Version 1)
Quarter: 2012Q4

REPORT INFORMATION
  Report Type: 
  Country: US (occurrence: US)
  Receive Date: 20121019
  Receipt Date: 20121019
  Transmission Date: 20130627
  Serious: No
  Sender: FDA-Public Use
  Company Number: US-PFIZER INC-2012260189

PATIENT
  Age: 3 Year
  Sex: Female
  Weight: 20 kg

DRUGS (2)
  1. CHILDRENS ADVIL [Suspect]
     Indication: PYREXIA
     Dosage: 2 teaspoons, every 6 or 8 hours
     Route: 048
     Dates: start: 20121015, end: 20121016
  2. TYLENOL [Concomitant]
     Indication: PYREXIA
     Dosage: UNK

REACTIONS (1)
  - Vomiting [Recovered/Resolved]
